FAERS Safety Report 11492226 (Version 2)
Quarter: 2015Q4

REPORT INFORMATION
  Report Type: Spontaneous
  Country: US (occurrence: US)
  Receive Date: 20150910
  Receipt Date: 20151019
  Transmission Date: 20160304
  Serious: No
  Sender: FDA-Public Use
  Company Number: US-PFIZER INC-2015298946

PATIENT
  Age: 86 Year
  Sex: Female

DRUGS (13)
  1. MELOXICAM. [Concomitant]
     Active Substance: MELOXICAM
     Dosage: 15 MG, UNK
  2. MONTELUKAST [Concomitant]
     Active Substance: MONTELUKAST SODIUM
     Dosage: 10 MG 1 TABLET, DAILY
  3. LOSARTAN. [Concomitant]
     Active Substance: LOSARTAN
     Dosage: 100 MG, 1X/DAY
  4. OSTEO-BI-FLEX [Concomitant]
     Dosage: 1 TABLET, DAILY
  5. FUROSEMIDE. [Concomitant]
     Active Substance: FUROSEMIDE
     Dosage: 20 MG, 1X/DAY
  6. CARVEDILOL. [Concomitant]
     Active Substance: CARVEDILOL
     Dosage: 6.25 MG, 2X/DAY
  7. DORZOLAMIDE W/TIMOLOL [Concomitant]
     Dosage: 2-0.5%, TWICE A DAY IN EACH EYE
  8. ALLOPURINOL. [Concomitant]
     Active Substance: ALLOPURINOL
     Dosage: 100 MG, 1X/DAY
  9. CALCIUM [Concomitant]
     Active Substance: CALCIUM
     Dosage: 600 MG, 1X/DAY
  10. ALENDRONATE [Concomitant]
     Active Substance: ALENDRONATE SODIUM
     Dosage: 70 MG, WEEKLY
  11. REVATIO [Suspect]
     Active Substance: SILDENAFIL CITRATE
     Indication: PULMONARY HYPERTENSION
     Dosage: 20 MG, 3X/DAY
     Dates: start: 20150916
  12. FENOFIBRATE. [Concomitant]
     Active Substance: FENOFIBRATE
     Dosage: 160 MG, 1X/DAY
  13. LATANOPROST. [Concomitant]
     Active Substance: LATANOPROST
     Dosage: 1 DROP IN EACH EYE

REACTIONS (2)
  - Dyspnoea [Recovered/Resolved]
  - Drug ineffective [Unknown]

NARRATIVE: CASE EVENT DATE: 20150916
